FAERS Safety Report 8538432-2 (Version None)
Quarter: 2012Q3

REPORT INFORMATION
  Report Type: 
  Country: None (occurrence: None)
  Receive Date: 20120726
  Receipt Date: 20120716
  Transmission Date: 20120928
  Serious: Yes (Hospitalization)
  Sender: FDA-Public Use
  Company Number: US-009507513-1207USA008373

PATIENT

DRUGS (3)
  1. VORINOSTAT [Suspect]
     Indication: GLIOBLASTOMA MULTIFORME
     Dosage: 200 MG, BID
     Route: 048
     Dates: start: 20120703, end: 20120709
  2. TEMOZOLOMIDE [Suspect]
     Indication: GLIOBLASTOMA MULTIFORME
     Dosage: 150 MG/M2, QD
     Route: 048
     Dates: start: 20120703, end: 20120709
  3. ERLOTINIB HYDROCHLORIDE [Suspect]
     Indication: GLIOBLASTOMA MULTIFORME
     Dosage: 200 MG, QD
     Route: 048
     Dates: start: 20120703, end: 20120713

REACTIONS (5)
  - MUSCULAR WEAKNESS [None]
  - URINARY TRACT INFECTION [None]
  - DEHYDRATION [None]
  - DIARRHOEA [None]
  - FATIGUE [None]
